FAERS Safety Report 10866884 (Version 1)
Quarter: 2015Q1

REPORT INFORMATION
  Report Type: Spontaneous
  Country: US (occurrence: None)
  Receive Date: 20150220
  Receipt Date: 20150220
  Transmission Date: 20150721
  Serious: No
  Sender: FDA-Public Use
  Company Number: None

PATIENT
  Age: 61 Year
  Sex: Female
  Weight: 86.18 kg

DRUGS (4)
  1. VITAMIN C 1000 MG [Concomitant]
  2. ZYRTEC [Suspect]
     Active Substance: CETIRIZINE HYDROCHLORIDE
     Indication: MULTIPLE ALLERGIES
  3. ARMOUR THYROID [Concomitant]
     Active Substance: THYROID, PORCINE\THYROID, UNSPECIFIED
  4. QUERCETIN 1000MG [Concomitant]

REACTIONS (4)
  - Urticaria [None]
  - Drug withdrawal syndrome [None]
  - Pruritus generalised [None]
  - Drug dependence [None]

NARRATIVE: CASE EVENT DATE: 20150202
